FAERS Safety Report 9709484 (Version 1)
Quarter: 2013Q4

REPORT INFORMATION
  Report Type: Spontaneous
  Country: US (occurrence: US)
  Receive Date: 20131126
  Receipt Date: 20131126
  Transmission Date: 20140711
  Serious: Yes (Other)
  Sender: FDA-Public Use
  Company Number: US-BIOGENIDEC-2013BI112794

PATIENT
  Age: 38 Year
  Sex: Male

DRUGS (2)
  1. AVONEX [Suspect]
     Indication: MULTIPLE SCLEROSIS
     Route: 030
  2. AVONEX [Suspect]
     Indication: MULTIPLE SCLEROSIS
     Route: 030
     Dates: start: 20010524, end: 20130201

REACTIONS (5)
  - Myocardial infarction [Recovered/Resolved]
  - Sarcoidosis [Not Recovered/Not Resolved]
  - Stent placement [Recovered/Resolved]
  - General physical health deterioration [Not Recovered/Not Resolved]
  - Emotional disorder [Unknown]
